FAERS Safety Report 13005331 (Version 1)
Quarter: 2016Q4

REPORT INFORMATION
  Report Type: Spontaneous
  Country: BR (occurrence: BR)
  Receive Date: 20161207
  Receipt Date: 20161207
  Transmission Date: 20170207
  Serious: Yes (Disabling)
  Sender: FDA-Public Use
  Company Number: BR-009507513-1612BRA000261

PATIENT
  Sex: Female
  Weight: 84 kg

DRUGS (1)
  1. LOSARTAN POTASSIUM. [Suspect]
     Active Substance: LOSARTAN POTASSIUM
     Route: 048

REACTIONS (8)
  - Hypertension [Unknown]
  - Thyroid disorder [Unknown]
  - Knee operation [Recovered/Resolved with Sequelae]
  - Anxiety [Unknown]
  - Adverse event [Unknown]
  - Blood cholesterol abnormal [Unknown]
  - Memory impairment [Not Recovered/Not Resolved]
  - Depression [Not Recovered/Not Resolved]

NARRATIVE: CASE EVENT DATE: 2014
